FAERS Safety Report 9084034 (Version 2)
Quarter: 2013Q2

REPORT INFORMATION
  Report Type: Spontaneous
  Country: US (occurrence: US)
  Receive Date: 20130130
  Receipt Date: 20130509
  Transmission Date: 20140414
  Serious: Yes (Other)
  Sender: FDA-Public Use
  Company Number: US-BAYER-2013-009891

PATIENT
  Age: 82 Year
  Sex: Female
  Weight: 68.03 kg

DRUGS (10)
  1. BAYER GENUINE ASPIRIN ORIGINAL STRENGTH [Suspect]
     Indication: ARTHRITIS
     Dosage: 6 TO 8 TABLETS PER DAY
     Route: 048
     Dates: start: 1973
  2. VITAMIN C [Concomitant]
  3. VITAMIN D3 [Concomitant]
  4. VITAMIN B12 [Concomitant]
  5. ZINC [Concomitant]
  6. VITAMIN E [Concomitant]
  7. FOLIC ACID [Concomitant]
  8. LUTEIN [Concomitant]
  9. LISINOPRIL [Concomitant]
     Dosage: 40 MG, QD
     Dates: start: 1990
  10. LEVEMIR [Concomitant]
     Dosage: 12 IU, QD
     Dates: start: 2009

REACTIONS (3)
  - Blindness unilateral [Not Recovered/Not Resolved]
  - Blindness unilateral [Not Recovered/Not Resolved]
  - Retinal vein occlusion [Not Recovered/Not Resolved]
